FAERS Safety Report 9000969 (Version 1)
Quarter: 2012Q4

REPORT INFORMATION
  Report Type: Spontaneous
  Country: GB (occurrence: None)
  Receive Date: 20121226
  Receipt Date: 20121226
  Transmission Date: 20130627
  Serious: Yes (Disabling)
  Sender: FDA-Public Use
  Company Number: AUR-APL-2012-05453

PATIENT
  Sex: Female
  Weight: 69 kg

DRUGS (1)
  1. TERBINAFINE [Suspect]
     Indication: FUNGAL INFECTION OF NAIL
     Route: 048
     Dates: start: 20120504, end: 20120526

REACTIONS (9)
  - Nausea [None]
  - Depression [None]
  - Alopecia [None]
  - Lethargy [None]
  - Vertigo [None]
  - Eye disorder [None]
  - Malaise [None]
  - Vision blurred [None]
  - Anxiety [None]
